FAERS Safety Report 12753298 (Version 1)
Quarter: 2016Q3

REPORT INFORMATION
  Report Type: Spontaneous
  Country: GB (occurrence: GB)
  Receive Date: 20160916
  Receipt Date: 20160916
  Transmission Date: 20161109
  Serious: Yes (Other)
  Sender: FDA-Public Use
  Company Number: GB-TEVA-691337ACC

PATIENT
  Sex: Male

DRUGS (1)
  1. METRONIDAZOLE. [Suspect]
     Active Substance: METRONIDAZOLE
     Dosage: 600 MILLIGRAM DAILY;

REACTIONS (41)
  - Thinking abnormal [Unknown]
  - Fatigue [Recovered/Resolved]
  - Abdominal pain upper [Not Recovered/Not Resolved]
  - Arthralgia [Recovered/Resolved]
  - Oropharyngeal pain [Recovered/Resolved]
  - Cough [Recovered/Resolved]
  - Dizziness [Unknown]
  - Back pain [Unknown]
  - Tremor [Recovered/Resolved]
  - Chills [Recovered/Resolved]
  - Musculoskeletal stiffness [Recovered/Resolved]
  - Memory impairment [Unknown]
  - Headache [Recovered/Resolved]
  - Asthenia [Unknown]
  - Pain in extremity [Recovered/Resolved]
  - Eye pain [Unknown]
  - Diarrhoea [Not Recovered/Not Resolved]
  - Vertigo [Recovered/Resolved]
  - Paraesthesia [Recovered/Resolved]
  - Anxiety [Recovered/Resolved]
  - Illusion [Unknown]
  - Vision blurred [Unknown]
  - Paraesthesia oral [Recovered/Resolved]
  - Dyspnoea [Recovered/Resolved]
  - Confusional state [Unknown]
  - Speech disorder [Recovered/Resolved]
  - Abasia [Recovered/Resolved]
  - Dysphonia [Recovered/Resolved]
  - Rhinorrhoea [Unknown]
  - Panic disorder [Recovered/Resolved]
  - Nausea [Recovered/Resolved]
  - Dysarthria [Recovered/Resolved]
  - Somnolence [Recovered/Resolved]
  - Asthenia [Recovered/Resolved]
  - Ear pain [Unknown]
  - Haemorrhage [Unknown]
  - Feeling abnormal [Recovered/Resolved]
  - Lid sulcus deepened [Recovered/Resolved]
  - Photopsia [Unknown]
  - Hyperhidrosis [Unknown]
  - Dry mouth [Unknown]
